FAERS Safety Report 6540599-2 (Version None)
Quarter: 2010Q1

REPORT INFORMATION
  Report Type: 
  Country: None (occurrence: None)
  Receive Date: 20100118
  Receipt Date: 20100108
  Transmission Date: 20100710
  Serious: Yes (Hospitalization)
  Sender: FDA-Public Use
  Company Number: US-ELI_LILLY_AND_COMPANY-US201001001344

PATIENT
  Sex: Female

DRUGS (11)
  1. PEMETREXED [Suspect]
     Indication: NON-SMALL CELL LUNG CANCER
     Dosage: 500 MG/M2, OTHER
     Route: 042
     Dates: start: 20090603
  2. CARBOPLATIN [Suspect]
     Indication: NON-SMALL CELL LUNG CANCER
     Dosage: 6 D/F, OTHER
     Route: 042
     Dates: start: 20090603, end: 20090805
  3. BEVACIZUMAB [Suspect]
     Indication: NON-SMALL CELL LUNG CANCER
     Dosage: 15 MG/KG, OTHER
     Route: 042
     Dates: start: 20090603
  4. FOLIC ACID [Concomitant]
     Indication: SUPPLEMENTATION THERAPY
     Dates: start: 20090527
  5. CLONAZEPAM [Concomitant]
     Indication: INSOMNIA
     Dates: start: 20090528
  6. DRISDOL [Concomitant]
     Indication: MINERAL DEFICIENCY
     Dates: start: 20090409
  7. LYRICA [Concomitant]
     Indication: FIBROMYALGIA
     Dates: start: 20080616
  8. LOPRESSOR [Concomitant]
     Indication: HYPERTENSION
     Dates: start: 20040101
  9. TRAMADOL [Concomitant]
     Indication: FIBROMYALGIA
     Dates: start: 20090528
  10. OMEPRAZOLE [Concomitant]
     Indication: GASTROOESOPHAGEAL REFLUX DISEASE
     Dates: start: 20090701
  11. ALBUTEROL [Concomitant]

REACTIONS (2)
  - ANAEMIA [None]
  - DYSPNOEA [None]
